FAERS Safety Report 18477047 (Version 2)
Quarter: 2021Q3

REPORT INFORMATION
  Report Type: Report from Study
  Country: MX (occurrence: MX)
  Receive Date: 20201107
  Receipt Date: 20210810
  Transmission Date: 20211014
  Serious: Yes (Other)
  Sender: FDA-Public Use
  Company Number: NVSC2020MX295341

PATIENT
  Sex: Female

DRUGS (2)
  1. TASIGNA [Suspect]
     Active Substance: NILOTINIB
     Indication: CHRONIC MYELOID LEUKAEMIA
     Dosage: 400 MG, BID (EVERY 12 HOURS)
     Route: 048
  2. CELECOXIB. [Suspect]
     Active Substance: CELECOXIB
     Indication: BONE PAIN
     Dosage: 200 MG, BID (EVERY 12 HOURS)
     Route: 048

REACTIONS (8)
  - Hernia [Recovering/Resolving]
  - Fall [Unknown]
  - Syncope [Unknown]
  - Joint injury [Unknown]
  - Accident [Not Recovered/Not Resolved]
  - Spinal column injury [Unknown]
  - Bone pain [Not Recovered/Not Resolved]
  - Hypotension [Recovering/Resolving]
